FAERS Safety Report 8821104 (Version 5)
Quarter: 2014Q4

REPORT INFORMATION
  Report Type: Report from Study
  Country: IL (occurrence: IL)
  Receive Date: 20121002
  Receipt Date: 20141201
  Transmission Date: 20150529
  Serious: Yes (Hospitalization)
  Sender: FDA-Public Use
  Company Number: IL-GLAXOSMITHKLINE-B0791517B

PATIENT
  Age: 25 Year
  Sex: Female
  Weight: 69 kg

DRUGS (6)
  1. NEURONTIN [Concomitant]
     Active Substance: GABAPENTIN
     Dates: start: 20060519
  2. NORGESTIMATE [Concomitant]
     Active Substance: NORGESTIMATE
     Indication: CONTRACEPTION
     Dates: start: 20070629
  3. FOLIC ACID. [Concomitant]
     Active Substance: FOLIC ACID
     Route: 048
     Dates: start: 20060127
  4. OXCARBAZEPINE. [Concomitant]
     Active Substance: OXCARBAZEPINE
     Dates: start: 20070123
  5. VALPROIC ACID. [Concomitant]
     Active Substance: VALPROIC ACID
  6. RETIGABINE [Suspect]
     Active Substance: EZOGABINE
     Indication: PARTIAL SEIZURES
     Route: 048
     Dates: start: 20071008

REACTIONS (8)
  - Hepatic steatosis [Unknown]
  - Nail discolouration [Unknown]
  - Skin discolouration [Recovering/Resolving]
  - Pigmentation disorder [Not Recovered/Not Resolved]
  - Conjunctival discolouration [Unknown]
  - Skin hyperpigmentation [Unknown]
  - Pigmentation buccal [Unknown]
  - Macule [Unknown]

NARRATIVE: CASE EVENT DATE: 20120806
